FAERS Safety Report 8019750-3 (Version None)
Quarter: 2012Q1

REPORT INFORMATION
  Report Type: 
  Country: None (occurrence: None)
  Receive Date: 20120103
  Receipt Date: 20111227
  Transmission Date: 20120608
  Serious: Yes (Hospitalization)
  Sender: FDA-Public Use
  Company Number: FR-GLAXOSMITHKLINE-B0771597A

PATIENT
  Age: 35 Year
  Sex: Female

DRUGS (5)
  1. LAMICTAL [Suspect]
     Indication: EPILEPSY
     Dosage: 100MG TWICE PER DAY
     Route: 065
  2. TRAMADOL HCL [Suspect]
     Indication: PAIN IN EXTREMITY
     Route: 065
  3. NEURONTIN [Suspect]
     Indication: EPILEPSY
     Dosage: 800MG THREE TIMES PER DAY
     Route: 065
  4. URBANYL [Suspect]
     Indication: EPILEPSY
     Dosage: 5MG TWICE PER DAY
     Route: 065
  5. LEVOTHYROXINE SODIUM [Suspect]
     Indication: PRODUCT USED FOR UNKNOWN INDICATION
     Dosage: 125MCG PER DAY
     Route: 065

REACTIONS (2)
  - MATERNAL EXPOSURE DURING PREGNANCY [None]
  - PREMATURE BABY [None]
